FAERS Safety Report 13889626 (Version 1)
Quarter: 2017Q3

REPORT INFORMATION
  Report Type: Spontaneous
  Country: US (occurrence: US)
  Receive Date: 20170822
  Receipt Date: 20170822
  Transmission Date: 20171127
  Serious: No
  Sender: FDA-Public Use
  Company Number: US-ROCHE-1167110

PATIENT
  Sex: Female

DRUGS (12)
  1. ATORVASTATIN [Concomitant]
     Active Substance: ATORVASTATIN
  2. FOLIC ACID. [Concomitant]
     Active Substance: FOLIC ACID
  3. ACTEMRA [Suspect]
     Active Substance: TOCILIZUMAB
     Indication: RHEUMATOID ARTHRITIS
     Route: 042
  4. LYRICA [Concomitant]
     Active Substance: PREGABALIN
  5. METFORMIN [Concomitant]
     Active Substance: METFORMIN HYDROCHLORIDE
  6. CELEBREX [Concomitant]
     Active Substance: CELECOXIB
  7. FLEXERIL [Concomitant]
     Active Substance: CYCLOBENZAPRINE HYDROCHLORIDE
  8. IBUPROFEN. [Concomitant]
     Active Substance: IBUPROFEN
  9. LISPRO INSULIN [Concomitant]
     Active Substance: INSULIN LISPRO
  10. DICLOFENAC [Concomitant]
     Active Substance: DICLOFENAC
  11. AMBIEN [Concomitant]
     Active Substance: ZOLPIDEM TARTRATE
  12. METHOTREXATE. [Concomitant]
     Active Substance: METHOTREXATE

REACTIONS (8)
  - Gait disturbance [Unknown]
  - Dyspepsia [Unknown]
  - Sinusitis [Unknown]
  - Blister [Unknown]
  - Abdominal hernia [Unknown]
  - Diarrhoea [Unknown]
  - Flatulence [Unknown]
  - Muscular weakness [Unknown]
